FAERS Safety Report 11658848 (Version 1)
Quarter: 2015Q4

REPORT INFORMATION
  Report Type: Spontaneous
  Country: US (occurrence: None)
  Receive Date: 20151023
  Receipt Date: 20151023
  Transmission Date: 20160304
  Serious: No
  Sender: FDA-Public Use
  Company Number: None

PATIENT
  Sex: Female

DRUGS (2)
  1. PHENTERMINE. [Suspect]
     Active Substance: PHENTERMINE
     Dates: start: 1995, end: 1996
  2. PONDIMIN [Suspect]
     Active Substance: FENFLURAMINE HYDROCHLORIDE
     Dates: start: 1995, end: 1996

REACTIONS (2)
  - Hypertension [None]
  - Diabetes mellitus [None]
